FAERS Safety Report 7933461-1 (Version None)
Quarter: 2011Q4

REPORT INFORMATION
  Report Type: 
  Country: None (occurrence: None)
  Receive Date: 20111118
  Receipt Date: 20111107
  Transmission Date: 20120403
  Serious: Yes (Other)
  Sender: FDA-Public Use
  Company Number: 2011SP052354

PATIENT
  Age: 77 Year
  Sex: Female

DRUGS (4)
  1. SIMVASTATIN [Concomitant]
  2. NASONEX [Suspect]
     Indication: PRODUCT USED FOR UNKNOWN INDICATION
     Dosage: 2 DF;QD;INH
     Route: 055
  3. VERAPAMIL [Concomitant]
  4. PROAIR HFA [Concomitant]

REACTIONS (3)
  - GOUT [None]
  - BLOOD PRESSURE INCREASED [None]
  - BRONCHITIS [None]
